FAERS Safety Report 17413955 (Version 4)
Quarter: 2020Q3

REPORT INFORMATION
  Report Type: Spontaneous
  Country: US (occurrence: US)
  Receive Date: 20200213
  Receipt Date: 20200916
  Transmission Date: 20201102
  Serious: Yes (Other)
  Sender: FDA-Public Use
  Company Number: US-GILEAD-2020-0450648

PATIENT
  Age: 45 Year
  Sex: Male
  Weight: 100.77 kg

DRUGS (44)
  1. VIREAD [Suspect]
     Active Substance: TENOFOVIR DISOPROXIL FUMARATE
     Indication: HEPATITIS B
     Dosage: 300 MG, QOD
     Route: 048
     Dates: start: 2014, end: 20170605
  2. LISINOPRIL HCTZ [Concomitant]
     Active Substance: HYDROCHLOROTHIAZIDE\LISINOPRIL
  3. OMEPRAZOLE. [Concomitant]
     Active Substance: OMEPRAZOLE
  4. TYLENOL [Concomitant]
     Active Substance: ACETAMINOPHEN
  5. DESCOVY [Concomitant]
     Active Substance: EMTRICITABINE\TENOFOVIR ALAFENAMIDE FUMARATE
  6. OPTICROM [Concomitant]
     Active Substance: CROMOLYN SODIUM
  7. ACETAMINOPHEN. [Concomitant]
     Active Substance: ACETAMINOPHEN
  8. FAMOTIDINE. [Concomitant]
     Active Substance: FAMOTIDINE
  9. LASIX [Concomitant]
     Active Substance: FUROSEMIDE
  10. BARACLUDE [Concomitant]
     Active Substance: ENTECAVIR
  11. VITAMIN C [Concomitant]
     Active Substance: ASCORBIC ACID
  12. BENZONATATE. [Concomitant]
     Active Substance: BENZONATATE
  13. RANITIDINE. [Concomitant]
     Active Substance: RANITIDINE
  14. ROLAIDS [CALCIUM CARBONATE;MAGNESIUM HYDROXIDE] [Concomitant]
  15. TRUVADA [Suspect]
     Active Substance: EMTRICITABINE\TENOFOVIR DISOPROXIL FUMARATE
     Indication: HEPATITIS B
     Dosage: 1 DOSAGE FORM, Q3DAYS
     Route: 048
     Dates: start: 2014, end: 20150407
  16. LEXIVA [Concomitant]
     Active Substance: FOSAMPRENAVIR CALCIUM
  17. EPIVIR [Concomitant]
     Active Substance: LAMIVUDINE
  18. PERIDEX [CHLORHEXIDINE GLUCONATE] [Concomitant]
  19. ZIAGEN [Concomitant]
     Active Substance: ABACAVIR SULFATE
  20. AMOXICILLIN. [Concomitant]
     Active Substance: AMOXICILLIN
  21. NORVIR [Concomitant]
     Active Substance: RITONAVIR
  22. CEFADROXIL. [Concomitant]
     Active Substance: CEFADROXIL
  23. PENICILLIN [BENZYLPENICILLIN POTASSIUM;BENZYLPENICILLIN SODIUM] [Concomitant]
  24. LASIX [Concomitant]
     Active Substance: FUROSEMIDE
  25. DOLUTEGRAVIR [Concomitant]
     Active Substance: DOLUTEGRAVIR
  26. LAMIVUDINE. [Concomitant]
     Active Substance: LAMIVUDINE
  27. AMPICILLIN [Concomitant]
     Active Substance: AMPICILLIN
  28. BACTRIM [Concomitant]
     Active Substance: SULFAMETHOXAZOLE\TRIMETHOPRIM
  29. CORTISONE [Concomitant]
     Active Substance: CORTISONE
  30. ZANTAC [Concomitant]
     Active Substance: RANITIDINE HYDROCHLORIDE
  31. VIREAD [Suspect]
     Active Substance: TENOFOVIR DISOPROXIL FUMARATE
     Indication: HIV INFECTION
     Dosage: 300 MG, QD
     Route: 048
     Dates: start: 20140507, end: 2014
  32. VIREAD [Suspect]
     Active Substance: TENOFOVIR DISOPROXIL FUMARATE
     Dosage: UNK
     Route: 048
     Dates: start: 200511, end: 201707
  33. ZESTORETIC [Concomitant]
     Active Substance: HYDROCHLOROTHIAZIDE\LISINOPRIL
  34. LISINOPRIL. [Concomitant]
     Active Substance: LISINOPRIL
  35. CROMOLYN SODIUM. [Concomitant]
     Active Substance: CROMOLYN SODIUM
  36. PREDNISONE. [Concomitant]
     Active Substance: PREDNISONE
  37. IBUPROFEN. [Concomitant]
     Active Substance: IBUPROFEN
  38. TRUVADA [Suspect]
     Active Substance: EMTRICITABINE\TENOFOVIR DISOPROXIL FUMARATE
     Indication: HIV INFECTION
     Dosage: 1 DOSAGE FORM, QD
     Route: 048
     Dates: start: 20110402, end: 201409
  39. TRUVADA [Suspect]
     Active Substance: EMTRICITABINE\TENOFOVIR DISOPROXIL FUMARATE
     Dosage: UNK
     Route: 048
     Dates: start: 2005, end: 201707
  40. PRILOSEC [Concomitant]
     Active Substance: OMEPRAZOLE MAGNESIUM
  41. ACULAR [Concomitant]
     Active Substance: KETOROLAC TROMETHAMINE
  42. TIVICAY [Concomitant]
     Active Substance: DOLUTEGRAVIR SODIUM
  43. PREDNISOLONE. [Concomitant]
     Active Substance: PREDNISOLONE
  44. AZITHROMYCIN ANHYDROUS. [Concomitant]
     Active Substance: AZITHROMYCIN ANHYDROUS

REACTIONS (11)
  - Chronic kidney disease [Unknown]
  - Bone loss [Not Recovered/Not Resolved]
  - Bone density decreased [Unknown]
  - Tooth loss [Unknown]
  - Emotional distress [Unknown]
  - Pain [Unknown]
  - Anxiety [Unknown]
  - Renal failure [Unknown]
  - Anhedonia [Unknown]
  - Polyarteritis nodosa [Unknown]
  - Economic problem [Unknown]

NARRATIVE: CASE EVENT DATE: 201410
